FAERS Safety Report 7406509-0 (Version None)
Quarter: 2011Q2

REPORT INFORMATION
  Report Type: 
  Country: None (occurrence: None)
  Receive Date: 20110405
  Receipt Date: 20110405
  Transmission Date: 20111010
  Serious: Yes (Hospitalization)
  Sender: FDA-Public Use
  Company Number: None

PATIENT
  Age: 73 Year
  Sex: Male
  Weight: 105 kg

DRUGS (2)
  1. SIMVASTATIN [Suspect]
     Indication: DYSLIPIDAEMIA
     Dosage: 80 MG DAILY PO
     Route: 048
     Dates: start: 20070301, end: 20110325
  2. KETOCONAZOLE [Suspect]
     Indication: PROSTATE CANCER
     Dosage: 200 MG TID PO
     Route: 048
     Dates: start: 20110302, end: 20110325

REACTIONS (1)
  - RHABDOMYOLYSIS [None]
